FAERS Safety Report 6301558-8 (Version None)
Quarter: 2009Q3

REPORT INFORMATION
  Report Type: 
  Country: None (occurrence: None)
  Receive Date: 20090807
  Receipt Date: 20090729
  Transmission Date: 20100115
  Serious: Yes (Other)
  Sender: FDA-Public Use
  Company Number: DK-NOVOPROD-288122

PATIENT
  Age: 38 Year
  Sex: Male

DRUGS (4)
  1. NOVOLOG [Suspect]
     Indication: TYPE 1 DIABETES MELLITUS
     Dosage: 2+(2)+8/9+12  U, QD
  2. LEVEMIR [Concomitant]
     Indication: TYPE 1 DIABETES MELLITUS
     Dosage: 27 U AT NIGHT , QD
  3. THYCAPZOL [Concomitant]
     Indication: DRUG USE FOR UNKNOWN INDICATION
     Dosage: UNKNOWN
  4. ELTROXIN [Concomitant]
     Indication: DRUG USE FOR UNKNOWN INDICATION

REACTIONS (4)
  - BASEDOW'S DISEASE [None]
  - CONDITION AGGRAVATED [None]
  - DEVICE BREAKAGE [None]
  - HYPOGLYCAEMIA [None]
